FAERS Safety Report 10745478 (Version 2)
Quarter: 2015Q4

REPORT INFORMATION
  Report Type: Report from Study
  Country: US (occurrence: US)
  Receive Date: 20150128
  Receipt Date: 20151013
  Transmission Date: 20160304
  Serious: Yes (Hospitalization, Other)
  Sender: FDA-Public Use
  Company Number: US-JNJFOC-20150115532

PATIENT
  Age: 86 Year
  Sex: Male
  Weight: 68.04 kg

DRUGS (2)
  1. REMICADE [Suspect]
     Active Substance: INFLIXIMAB
     Indication: RHEUMATOID ARTHRITIS
     Route: 042
  2. AGGRENOX [Concomitant]
     Active Substance: ASPIRIN\DIPYRIDAMOLE
     Indication: VASCULAR GRAFT
     Route: 065

REACTIONS (5)
  - Drug effect decreased [Unknown]
  - Skin cancer [Unknown]
  - Gallbladder operation [Unknown]
  - Cerebrovascular accident [Unknown]
  - Deafness [Unknown]

NARRATIVE: CASE EVENT DATE: 20150816
